FAERS Safety Report 4311897-8 (Version None)
Quarter: 2004Q1

REPORT INFORMATION
  Report Type: 
  Country: None (occurrence: None)
  Receive Date: 20040303
  Receipt Date: 20040219
  Transmission Date: 20041129
  Serious: Yes (Hospitalization)
  Sender: FDA-Public Use
  Company Number: 2004010118

PATIENT
  Age: 60 Year
  Sex: Male
  Weight: 55 kg

DRUGS (6)
  1. LIPITOR [Suspect]
     Indication: HYPERCHOLESTEROLAEMIA
     Dosage: 10 MG (DAILY), ORAL
     Route: 048
     Dates: start: 20031215, end: 20040109
  2. AMLODIPINE BESYLATE [Concomitant]
  3. CANDESARTAN CILEXETIL (CANDESARTAN CILEXETIL) [Concomitant]
  4. GLIMEPIRIDE [Concomitant]
  5. TAMSULOSIN HYDROCHLORIDE (TAMSULOSIN HYDROCHLORIDE) [Concomitant]
  6. TRIAZOLAM [Concomitant]

REACTIONS (4)
  - ALANINE AMINOTRANSFERASE INCREASED [None]
  - ASPARTATE AMINOTRANSFERASE INCREASED [None]
  - DECREASED APPETITE [None]
  - MALAISE [None]
